FAERS Safety Report 7936874-7 (Version None)
Quarter: 2011Q4

REPORT INFORMATION
  Report Type: 
  Country: None (occurrence: None)
  Receive Date: 20111123
  Receipt Date: 20111123
  Transmission Date: 20120403
  Serious: No
  Sender: FDA-Public Use
  Company Number: None

PATIENT
  Age: 82 Year
  Sex: Female

DRUGS (1)
  1. TARCEVA [Suspect]
     Indication: LUNG NEOPLASM MALIGNANT
     Dosage: NOT PROVIDED

REACTIONS (5)
  - RASH [None]
  - SENSORY DISTURBANCE [None]
  - TONGUE DISORDER [None]
  - DIARRHOEA [None]
  - FUNGAL INFECTION [None]
